FAERS Safety Report 5157520-4 (Version None)
Quarter: 2006Q4

REPORT INFORMATION
  Report Type: 
  Country: None (occurrence: None)
  Receive Date: 20061127
  Receipt Date: 20061026
  Transmission Date: 20070319
  Serious: Yes (Other)
  Sender: FDA-Public Use
  Company Number: JP-JPN-A200604553

PATIENT
  Age: 26 Year
  Sex: Female

DRUGS (6)
  1. PAXIL [Suspect]
     Indication: DRUG USE FOR UNKNOWN INDICATION
     Dosage: 5MG PER DAY
     Route: 048
     Dates: start: 20060929, end: 20061001
  2. DEPAKENE [Concomitant]
     Route: 048
  3. SENIRAN [Concomitant]
     Route: 065
  4. GLORIAMIN [Concomitant]
     Route: 048
  5. LAC B [Concomitant]
     Route: 048
  6. UNKNOWN [Concomitant]
     Route: 048

REACTIONS (2)
  - ABNORMAL BEHAVIOUR [None]
  - SLEEP WALKING [None]
